FAERS Safety Report 12994547 (Version 1)
Quarter: 2016Q4

REPORT INFORMATION
  Report Type: Report from Study
  Country: BR (occurrence: BR)
  Receive Date: 20161202
  Receipt Date: 20161202
  Transmission Date: 20170207
  Serious: Yes (Other)
  Sender: FDA-Public Use
  Company Number: PHHY2016BR163659

PATIENT
  Sex: Female
  Weight: 83 kg

DRUGS (1)
  1. IMATINIB [Suspect]
     Active Substance: IMATINIB
     Indication: GASTRIC CANCER
     Route: 065

REACTIONS (3)
  - Limb discomfort [Unknown]
  - Abasia [Unknown]
  - Scab [Unknown]
